FAERS Safety Report 10861684 (Version 1)
Quarter: 2015Q1

REPORT INFORMATION
  Report Type: Spontaneous
  Country: US (occurrence: None)
  Receive Date: 20150219
  Receipt Date: 20150219
  Transmission Date: 20150721
  Serious: Yes (Death)
  Sender: FDA-Public Use
  Company Number: DEP_02525_2015

PATIENT
  Age: 41 Year
  Sex: Female

DRUGS (6)
  1. QUETIAPINE [Suspect]
     Active Substance: QUETIAPINE
     Indication: PRODUCT USED FOR UNKNOWN INDICATION
     Dosage: DF ORAL
     Route: 048
  2. GABAPENTIN. [Suspect]
     Active Substance: GABAPENTIN
     Indication: PRODUCT USED FOR UNKNOWN INDICATION
     Dosage: DF ORAL
     Route: 048
  3. AMITRIPTYLINE [Suspect]
     Active Substance: AMITRIPTYLINE
     Indication: PRODUCT USED FOR UNKNOWN INDICATION
     Dosage: DF ORAL
     Route: 048
  4. TIZANIDINE (TIZANIDINE) [Suspect]
     Active Substance: TIZANIDINE
     Indication: PRODUCT USED FOR UNKNOWN INDICATION
     Dosage: DF ORAL
     Route: 048
  5. BENZONATATE. [Suspect]
     Active Substance: BENZONATATE
     Indication: PRODUCT USED FOR UNKNOWN INDICATION
     Dosage: DF ORAL
     Route: 048
  6. DULOXETINE [Suspect]
     Active Substance: DULOXETINE
     Indication: PRODUCT USED FOR UNKNOWN INDICATION
     Dosage: DF ORAL
     Route: 048

REACTIONS (1)
  - Death [None]

NARRATIVE: CASE EVENT DATE: 2013
